FAERS Safety Report 8914234 (Version 1)
Quarter: 2012Q4

REPORT INFORMATION
  Report Type: 
  Country: FR (occurrence: FR)
  Receive Date: 20121119
  Receipt Date: 20121119
  Transmission Date: 20130627
  Serious: Yes (Hospitalization, Other)
  Sender: FDA-Public Use
  Company Number: FR-ELI_LILLY_AND_COMPANY-FR201211001047

PATIENT
  Age: 78 Year
  Sex: Male

DRUGS (16)
  1. CYMBALTA [Suspect]
     Dosage: 30 mg, qd
     Route: 048
     Dates: start: 20120921, end: 20120923
  2. CYNOMEL [Concomitant]
  3. LEVOTHYROX [Concomitant]
  4. AMLOR [Concomitant]
  5. INEXIUM [Concomitant]
  6. XATRAL [Concomitant]
  7. PLAVIX [Concomitant]
  8. SPIRIVA [Concomitant]
  9. SERETIDE [Concomitant]
  10. CONTRAMAL [Concomitant]
     Dosage: 100 mg, tid
     Dates: start: 20120917, end: 20120922
  11. LYRICA [Concomitant]
     Dosage: 25 mg, qd
     Dates: start: 20120918, end: 20120923
  12. PARACETAMOL [Concomitant]
     Dosage: 3 g, UNK
     Dates: start: 20120918
  13. MORPHINE [Concomitant]
  14. NUBAIN [Concomitant]
  15. ACUPAN [Concomitant]
  16. PARACETAMOL WITH CODEINE [Concomitant]

REACTIONS (19)
  - Chronic obstructive pulmonary disease [Not Recovered/Not Resolved]
  - Brain mass [Unknown]
  - Oxygen saturation decreased [Unknown]
  - Bronchitis [Not Recovered/Not Resolved]
  - Myocardial infarction [Not Recovered/Not Resolved]
  - Blood pressure increased [Not Recovered/Not Resolved]
  - Hyponatraemia [Recovered/Resolved]
  - Somnolence [Not Recovered/Not Resolved]
  - Headache [Unknown]
  - Tremor [Not Recovered/Not Resolved]
  - Alkalosis [Unknown]
  - Agitation [Unknown]
  - Hallucination [Not Recovered/Not Resolved]
  - Hyperhidrosis [Unknown]
  - Tachypnoea [Unknown]
  - Confusional state [Not Recovered/Not Resolved]
  - Clonus [Unknown]
  - Hypercapnia [Unknown]
  - Electrocardiogram T wave inversion [Unknown]
